FAERS Safety Report 11777726 (Version 10)
Quarter: 2016Q3

REPORT INFORMATION
  Report Type: Report from Study
  Country: JP (occurrence: JP)
  Receive Date: 20151125
  Receipt Date: 20160818
  Transmission Date: 20161109
  Serious: Yes (Hospitalization, Other)
  Sender: FDA-Public Use
  Company Number: JP-INCYTE CORPORATION-2015IN006109

PATIENT
  Age: 77 Year
  Sex: Male
  Weight: 54 kg

DRUGS (13)
  1. LANSOPRAZOLE. [Concomitant]
     Active Substance: LANSOPRAZOLE
     Dosage: 15 MG, QD
     Route: 048
  2. FLOMOX//CEFCAPENE PIVOXIL HYDROCHLORIDE [Concomitant]
     Active Substance: CEFCAPENE PIVOXIL HYDROCHLORIDE HYDRATE
  3. JAKAFI [Suspect]
     Active Substance: RUXOLITINIB
     Indication: JANUS KINASE 2 MUTATION
     Dosage: 10 MG, BID
     Route: 048
     Dates: start: 20150513
  4. JAKAFI [Suspect]
     Active Substance: RUXOLITINIB
     Dosage: 5 MG, QD
     Route: 048
  5. CANDESARTAN [Concomitant]
     Active Substance: CANDESARTAN
     Dosage: 4 MG, QD
     Route: 048
  6. JAKAFI [Suspect]
     Active Substance: RUXOLITINIB
     Indication: PRIMARY MYELOFIBROSIS
     Dosage: 20 MG, BID
     Route: 048
     Dates: start: 20150423, end: 20150512
  7. JAKAFI [Suspect]
     Active Substance: RUXOLITINIB
     Dosage: 5 MG, BID
     Route: 048
  8. FLOMOX//CEFCAPENE PIVOXIL HYDROCHLORIDE [Concomitant]
     Active Substance: CEFCAPENE PIVOXIL HYDROCHLORIDE HYDRATE
  9. CANDESARTAN [Concomitant]
     Active Substance: CANDESARTAN
     Indication: HYPERTENSION
     Dosage: 4 MG, QD
     Route: 048
  10. LANSOPRAZOLE. [Concomitant]
     Active Substance: LANSOPRAZOLE
     Indication: GASTROOESOPHAGEAL REFLUX DISEASE
     Dosage: 15 MG, QD
     Route: 048
  11. LANSOPRAZOLE. [Concomitant]
     Active Substance: LANSOPRAZOLE
     Dosage: 15 MG, QD
     Route: 048
  12. CANDESARTAN [Concomitant]
     Active Substance: CANDESARTAN
     Dosage: 4 MG, QD
     Route: 048
  13. FLOMOX//CEFCAPENE PIVOXIL HYDROCHLORIDE [Concomitant]
     Active Substance: CEFCAPENE PIVOXIL HYDROCHLORIDE HYDRATE
     Indication: PRODUCT USED FOR UNKNOWN INDICATION
     Dosage: 100 MG, UNK
     Route: 065

REACTIONS (10)
  - Disseminated intravascular coagulation [Unknown]
  - Cytomegalovirus infection [Recovered/Resolved]
  - Epstein-Barr virus infection [Unknown]
  - Klebsiella infection [Unknown]
  - General physical health deterioration [Unknown]
  - Liver abscess [Recovering/Resolving]
  - Gastric ulcer [Recovered/Resolved]
  - Asthenia [Unknown]
  - Thrombocytopenia [Recovered/Resolved]
  - Herpes zoster [Recovered/Resolved]

NARRATIVE: CASE EVENT DATE: 20150511
